FAERS Safety Report 9827096 (Version 1)
Quarter: 2014Q1

REPORT INFORMATION
  Report Type: Spontaneous
  Country: US (occurrence: US)
  Receive Date: 20140117
  Receipt Date: 20140117
  Transmission Date: 20141002
  Serious: No
  Sender: FDA-Public Use
  Company Number: US-GLAXOSMITHKLINE-A1035475A

PATIENT
  Age: 58 Year
  Sex: Female

DRUGS (4)
  1. PROMACTA [Suspect]
     Indication: ANAEMIA
     Dosage: 50MG PER DAY
     Route: 048
     Dates: start: 20130508
  2. PEGASYS [Concomitant]
  3. PROCRIT [Concomitant]
  4. RIBAVIRIN [Concomitant]

REACTIONS (2)
  - Diarrhoea [Unknown]
  - Nausea [Unknown]
